FAERS Safety Report 8193946-2 (Version None)
Quarter: 2012Q1

REPORT INFORMATION
  Report Type: 
  Country: None (occurrence: None)
  Receive Date: 20120308
  Receipt Date: 20120228
  Transmission Date: 20120608
  Serious: Yes (Hospitalization)
  Sender: FDA-Public Use
  Company Number: FR-JNJFOC-20120301289

PATIENT
  Sex: Female

DRUGS (5)
  1. RAMIPRIL [Concomitant]
     Route: 048
  2. COLCHICINE [Concomitant]
     Route: 048
  3. XARELTO [Suspect]
     Indication: PRODUCT USED FOR UNKNOWN INDICATION
     Route: 048
     Dates: start: 20111126, end: 20111129
  4. NEXIUM [Concomitant]
     Route: 048
  5. DIOSMIN [Concomitant]
     Route: 048

REACTIONS (1)
  - VENOUS THROMBOSIS [None]
